FAERS Safety Report 8963066 (Version 1)
Quarter: 2012Q4

REPORT INFORMATION
  Report Type: 
  Country: US (occurrence: US)
  Receive Date: 20121214
  Receipt Date: 20121214
  Transmission Date: 20130627
  Serious: Yes (Other)
  Sender: FDA-Public Use
  Company Number: US-COVIDIEN/TYCO HEALTHCARE/MALLINCKRODT-T201204293

PATIENT
  Age: 30 Year
  Sex: Female

DRUGS (3)
  1. FENTANYL TRANSDERMAL SYSTEM [Suspect]
     Indication: PSORIATIC ARTHROPATHY
     Dosage: 75 ug/hr, q 72 hours
     Route: 062
     Dates: start: 201102
  2. OXYCODONE / ACETAMINOPHEN [Concomitant]
     Indication: BREAKTHROUGH PAIN
     Dosage: 5/325 mg, 1 QID prn
  3. FLEXERIL                           /00428402/ [Concomitant]
     Dosage: UNK

REACTIONS (4)
  - Hypopnoea [Recovered/Resolved]
  - Toxicity to various agents [Recovered/Resolved]
  - Hypersomnia [Recovered/Resolved]
  - Fatigue [Recovered/Resolved]
